FAERS Safety Report 5164045-9 (Version None)
Quarter: 2006Q4

REPORT INFORMATION
  Report Type: 
  Country: None (occurrence: None)
  Receive Date: 20061204
  Receipt Date: 20061109
  Transmission Date: 20070319
  Serious: Yes (Other)
  Sender: FDA-Public Use
  Company Number: JP-GILEAD-2006-0010625

PATIENT
  Sex: Female
  Weight: 38 kg

DRUGS (15)
  1. HEPSERA [Suspect]
     Indication: HEPATITIS B
     Route: 048
     Dates: start: 20060922
  2. ALDACTONE [Concomitant]
  3. LASIX [Concomitant]
  4. PREDONINE [Concomitant]
     Dates: start: 19940101
  5. ALFACALCIDOL [Concomitant]
     Dates: start: 19940101
  6. PROHEPARUM [Concomitant]
     Dates: start: 19940101
  7. MENATETRENONE [Concomitant]
     Dates: start: 19940101
  8. BEZAFIBRATE [Concomitant]
     Dates: start: 20000907
  9. MICONAZOLE [Concomitant]
     Dates: start: 20031104
  10. LAMIVUDINE [Concomitant]
     Dates: start: 20050209
  11. CINAL [Concomitant]
     Dates: start: 20000907
  12. VITAMEDIN [Concomitant]
     Dates: start: 20000907
  13. FAMOTIDINE [Concomitant]
     Dates: start: 20000508
  14. HUMAN INSULIN [Concomitant]
  15. INT./LONG-ACTING INSULIN [Concomitant]
     Dates: start: 19880101

REACTIONS (4)
  - ASCITES [None]
  - HAEMATOCRIT DECREASED [None]
  - OEDEMA [None]
  - WEIGHT INCREASED [None]
